FAERS Safety Report 9419460 (Version 5)
Quarter: 2013Q4

REPORT INFORMATION
  Report Type: Spontaneous
  Country: DE (occurrence: DE)
  Receive Date: 20130725
  Receipt Date: 20131002
  Transmission Date: 20140711
  Serious: Yes (Hospitalization, Other)
  Sender: FDA-Public Use
  Company Number: DE-PFIZER INC-2013216182

PATIENT
  Age: 52 Year
  Sex: Female

DRUGS (5)
  1. RAMIPRIL [Suspect]
     Indication: HYPERTENSION
     Dosage: 12.5 MG, DAILY
     Route: 048
  2. SULFASALAZINE [Suspect]
     Indication: RHEUMATOID ARTHRITIS
     Dosage: UNK
     Route: 048
     Dates: start: 20130111
  3. L-THYROXINE [Suspect]
     Indication: HYPOTHYROIDISM
     Dosage: 50 MG, DAILY
     Route: 048
  4. BLINDED THERAPY [Suspect]
     Indication: RHEUMATOID ARTHRITIS
     Dosage: 100 MG, 2X/DAY
     Route: 048
     Dates: start: 20120410, end: 20120925
  5. BLINDED THERAPY [Suspect]
     Dosage: 100 MG, 2X/DAY
     Route: 048
     Dates: start: 20120925, end: 20130429

REACTIONS (4)
  - Cervix carcinoma [Not Recovered/Not Resolved]
  - Metastatic neoplasm [Unknown]
  - Cholelithiasis [Unknown]
  - Post cholecystectomy syndrome [Unknown]
